FAERS Safety Report 9802155 (Version 2)
Quarter: 2014Q3

REPORT INFORMATION
  Report Type: Spontaneous
  Country: US (occurrence: US)
  Receive Date: 20140107
  Receipt Date: 20140806
  Transmission Date: 20150326
  Serious: Yes (Hospitalization, Other)
  Sender: FDA-Public Use
  Company Number: US-009507513-1401USA001996

PATIENT
  Sex: Female

DRUGS (1)
  1. NUVARING [Suspect]
     Active Substance: ETHINYL ESTRADIOL\ETONOGESTREL
     Indication: CONTRACEPTION
     Dosage: UNK
     Route: 067
     Dates: end: 20090311

REACTIONS (6)
  - International normalised ratio increased [Unknown]
  - Asthma [Unknown]
  - Pulmonary embolism [Unknown]
  - Uterine leiomyoma [Unknown]
  - Ear pain [Unknown]
  - Adnexa uteri mass [Unknown]

NARRATIVE: CASE EVENT DATE: 20090305
